FAERS Safety Report 4618942-0 (Version None)
Quarter: 2005Q2

REPORT INFORMATION
  Report Type: 
  Country: None (occurrence: None)
  Receive Date: 20050302
  Receipt Date: 20041123
  Transmission Date: 20051028
  Serious: Yes (Death, Other)
  Sender: FDA-Public Use
  Company Number: 200421064BWH

PATIENT

DRUGS (1)
  1. TRASYLOL [Suspect]

REACTIONS (2)
  - CARDIAC FAILURE [None]
  - THROMBOSIS [None]
